FAERS Safety Report 5208021-6 (Version None)
Quarter: 2007Q1

REPORT INFORMATION
  Report Type: 
  Country: None (occurrence: None)
  Receive Date: 20070115
  Receipt Date: 20070110
  Transmission Date: 20070707
  Serious: Yes (Other)
  Sender: FDA-Public Use
  Company Number: CA-BAYER-200614231GDS

PATIENT
  Age: 68 Year
  Sex: Male

DRUGS (13)
  1. NEXAVAR [Suspect]
     Indication: RENAL CELL CARCINOMA STAGE UNSPECIFIED
     Dosage: TOTAL DAILY DOSE: 800 MG
     Route: 048
     Dates: start: 20060916
  2. GLYBURIDE [Concomitant]
     Indication: DIABETES MELLITUS
     Route: 065
  3. METFORMIN HCL [Concomitant]
     Indication: DIABETES MELLITUS
     Route: 065
  4. LIPITOR [Concomitant]
     Indication: UNEVALUABLE EVENT
     Route: 065
  5. AVANDIA [Concomitant]
     Indication: UNEVALUABLE EVENT
     Route: 065
  6. ACCURETIC [Concomitant]
     Indication: UNEVALUABLE EVENT
     Route: 065
  7. ASPIRIN [Concomitant]
     Indication: UNEVALUABLE EVENT
     Route: 065
  8. NORVASC [Concomitant]
     Indication: UNEVALUABLE EVENT
     Route: 065
  9. VENTOLIN [Concomitant]
     Indication: UNEVALUABLE EVENT
     Route: 065
  10. SPIRIVA [Concomitant]
     Indication: UNEVALUABLE EVENT
     Route: 065
  11. COMBIVENT [Concomitant]
     Indication: UNEVALUABLE EVENT
     Route: 065
  12. BISOPROLOL FUMARATE [Concomitant]
     Indication: UNEVALUABLE EVENT
     Route: 065
  13. PRANDASE [Concomitant]
     Indication: DIABETES MELLITUS
     Route: 065

REACTIONS (7)
  - ABDOMINAL DISTENSION [None]
  - ASTHENIA [None]
  - HYPOGLYCAEMIA [None]
  - PAIN IN EXTREMITY [None]
  - PYREXIA [None]
  - TREMOR [None]
  - VOMITING [None]
